FAERS Safety Report 10675177 (Version 3)
Quarter: 2014Q4

REPORT INFORMATION
  Report Type: Spontaneous
  Country: US (occurrence: US)
  Receive Date: 20141224
  Receipt Date: 20141229
  Transmission Date: 20150529
  Serious: Yes (Hospitalization, Other)
  Sender: FDA-Public Use
  Company Number: US-UNITED THERAPEUTICS-UNT-2014-011678

PATIENT
  Age: 70 Year
  Sex: Male
  Weight: 100.68 kg

DRUGS (2)
  1. REMODULIN [Suspect]
     Active Substance: TREPROSTINIL
     Indication: PULMONARY ARTERIAL HYPERTENSION
     Dosage: 0.017 ?G/KG/MIN, CONTINUING
     Route: 041
     Dates: start: 20140821
  2. REMODULIN [Suspect]
     Active Substance: TREPROSTINIL
     Dosage: 0.018 ?G/KG/MIN, CONTINUING
     Route: 058
     Dates: start: 20140821

REACTIONS (10)
  - Dyspnoea [Unknown]
  - Diarrhoea [Unknown]
  - Headache [Unknown]
  - Injection site haemorrhage [Unknown]
  - Infection [Unknown]
  - Dizziness [Unknown]
  - Thrombosis in device [Unknown]
  - Device related infection [Unknown]
  - Pyrexia [Unknown]
  - Feeling cold [Unknown]

NARRATIVE: CASE EVENT DATE: 2014
